FAERS Safety Report 25787280 (Version 2)
Quarter: 2025Q4

REPORT INFORMATION
  Report Type: Spontaneous
  Country: CA (occurrence: CA)
  Receive Date: 20250910
  Receipt Date: 20251223
  Transmission Date: 20260117
  Serious: Yes (Other)
  Sender: ROCHE
  Company Number: CA-ROCHE-10000380322

PATIENT
  Age: 57 Year
  Sex: Female

DRUGS (4)
  1. RITUXIMAB [Suspect]
     Active Substance: RITUXIMAB
     Indication: Rheumatoid arthritis
     Route: 042
  2. PREDNISONE [Suspect]
     Active Substance: PREDNISONE
     Indication: Product used for unknown indication
     Route: 048
  3. PREDNISONE [Suspect]
     Active Substance: PREDNISONE
  4. PREDNISONE [Suspect]
     Active Substance: PREDNISONE

REACTIONS (20)
  - Arthralgia [Recovered/Resolved]
  - Blood glucose fluctuation [Recovered/Resolved]
  - Blood pressure increased [Recovered/Resolved]
  - C-reactive protein abnormal [Recovered/Resolved]
  - Confusional state [Recovered/Resolved]
  - Drug ineffective [Unknown]
  - Dry eye [Recovered/Resolved]
  - Emotional disorder [Recovered/Resolved]
  - Influenza like illness [Recovered/Resolved]
  - Irritability [Recovered/Resolved]
  - Loss of personal independence in daily activities [Recovered/Resolved]
  - Muscle atrophy [Recovered/Resolved]
  - Rheumatoid arthritis [Recovered/Resolved]
  - Rotator cuff syndrome [Recovered/Resolved]
  - Sedation [Recovered/Resolved]
  - Swollen tongue [Recovered/Resolved]
  - Tongue coated [Recovered/Resolved]
  - Vision blurred [Recovered/Resolved]
  - Visual impairment [Recovered/Resolved]
  - Madarosis [Recovered/Resolved]
